FAERS Safety Report 7878345-2 (Version None)
Quarter: 2011Q4

REPORT INFORMATION
  Report Type: 
  Country: None (occurrence: None)
  Receive Date: 20111101
  Receipt Date: 20111024
  Transmission Date: 20120403
  Serious: Yes (Other)
  Sender: FDA-Public Use
  Company Number: US-SHIRE-ALL1-2011-04099

PATIENT
  Sex: Male
  Weight: 21 kg

DRUGS (11)
  1. TYLENOL (CAPLET) [Concomitant]
     Indication: PREMEDICATION
     Dosage: 15 MG/KG, 1X/WEEK
     Route: 065
     Dates: start: 20110801
  2. ELAPRASE [Suspect]
     Indication: MUCOPOLYSACCHARIDOSIS II
     Dosage: 12 MG, 1X/WEEK
     Route: 041
     Dates: start: 20110801
  3. BENADRYL [Concomitant]
     Dosage: UNK(IVP FOR IRR), UNKNOWN
     Route: 041
  4. VISTARIL                           /00058402/ [Concomitant]
     Indication: PREMEDICATION
     Dosage: UNK, UNKNOWN
     Route: 065
     Dates: start: 20110902
  5. BENADRYL [Concomitant]
     Indication: PREMEDICATION
     Dosage: 0.5 MG/KG, 1X/WEEK
     Route: 065
     Dates: start: 20110801
  6. PREDNISOLONE [Concomitant]
     Indication: PREMEDICATION
     Dosage: 1 MG, UNKNOWN
     Route: 065
     Dates: start: 20110913, end: 20111012
  7. METHYLPREDNISOLONE [Concomitant]
     Indication: PREMEDICATION
     Dosage: UNK, UNKNOWN( 1 MG/KG)
     Route: 065
  8. ELAMAX [Concomitant]
     Indication: PRODUCT USED FOR UNKNOWN INDICATION
     Dosage: UNK, UNKNOWN
     Route: 061
  9. SODIUM CHLORIDE [Concomitant]
     Indication: PREMEDICATION
     Dosage: UNK, UNKNOWN
     Route: 041
  10. HEPARIN [Concomitant]
     Indication: PREMEDICATION
     Dosage: UNK, UNKNOWN
     Route: 041
  11. METHYLPREDNISOLONE [Concomitant]
     Dosage: 20 MG, UNKNOWN
     Route: 040
     Dates: start: 20110916

REACTIONS (11)
  - DYSPHONIA [None]
  - OROPHARYNGEAL PAIN [None]
  - FLUSHING [None]
  - GENERALISED ERYTHEMA [None]
  - OXYGEN SATURATION DECREASED [None]
  - URTICARIA [None]
  - RASH [None]
  - LIP SWELLING [None]
  - SWELLING FACE [None]
  - INFUSION RELATED REACTION [None]
  - TACHYCARDIA [None]
